FAERS Safety Report 14764165 (Version 1)
Quarter: 2018Q2

REPORT INFORMATION
  Report Type: Spontaneous
  Country: FR (occurrence: FR)
  Receive Date: 20180416
  Receipt Date: 20180416
  Transmission Date: 20180711
  Serious: Yes (Hospitalization)
  Sender: FDA-Public Use
  Company Number: FR-MYLANLABS-2018M1023283

PATIENT
  Age: 94 Year
  Sex: Female

DRUGS (9)
  1. MACROGOL [Concomitant]
     Active Substance: POLYETHYLENE GLYCOLS
     Indication: PRODUCT USED FOR UNKNOWN INDICATION
     Dosage: UNK
  2. ROCEPHINE [Suspect]
     Active Substance: CEFTRIAXONE SODIUM
     Indication: LUNG DISORDER
     Dosage: UNK
     Route: 042
  3. KETOPROFENE                        /00321701/ [Concomitant]
     Active Substance: KETOPROFEN
     Indication: PRODUCT USED FOR UNKNOWN INDICATION
     Dosage: UNK
  4. DIPROSONE                          /00008502/ [Concomitant]
     Active Substance: BETAMETHASONE SODIUM PHOSPHATE
     Indication: PRODUCT USED FOR UNKNOWN INDICATION
     Dosage: UNK
  5. TRAMADOL MYLAN [Suspect]
     Active Substance: TRAMADOL
     Indication: LUNG DISORDER
     Dosage: UNK
     Route: 048
  6. EFFERALGAN [Concomitant]
     Active Substance: ACETAMINOPHEN
     Indication: PRODUCT USED FOR UNKNOWN INDICATION
     Dosage: UNK
  7. HYDROXYZINE                        /00058402/ [Concomitant]
     Active Substance: HYDROXYZINE HYDROCHLORIDE
     Indication: PRODUCT USED FOR UNKNOWN INDICATION
     Dosage: UNK
  8. FLAGYL [Suspect]
     Active Substance: METRONIDAZOLE\METRONIDAZOLE HYDROCHLORIDE
     Indication: LUNG DISORDER
     Dosage: UNK
     Route: 042
  9. CETIRIZINE (DICHLORHYDRATE DE) [Concomitant]
     Active Substance: CETIRIZINE HYDROCHLORIDE
     Indication: PRODUCT USED FOR UNKNOWN INDICATION
     Dosage: UNK

REACTIONS (1)
  - Erythema [Recovered/Resolved]

NARRATIVE: CASE EVENT DATE: 20170912
